FAERS Safety Report 6980086-0 (Version None)
Quarter: 2010Q3

REPORT INFORMATION
  Report Type: 
  Country: None (occurrence: None)
  Receive Date: 20100914
  Receipt Date: 20100831
  Transmission Date: 20110219
  Serious: Yes (Hospitalization, Other)
  Sender: FDA-Public Use
  Company Number: US-PAR PHARMACEUTICAL, INC-2010SCPR002066

PATIENT
  Age: 58 Year
  Sex: Female

DRUGS (2)
  1. CABERGOLINE [Suspect]
     Indication: PROLACTINOMA
     Dosage: 0.5 MG, TWICE A WEEK
     Route: 065
  2. LEVOTHYROXINE SODIUM [Concomitant]
     Indication: HORMONE REPLACEMENT THERAPY
     Dosage: 50 MCG, DAILY
     Route: 065

REACTIONS (19)
  - BLOOD ALBUMIN DECREASED [None]
  - BLOOD BILIRUBIN DECREASED [None]
  - BLOOD CHLORIDE INCREASED [None]
  - BLOOD CORTISOL DECREASED [None]
  - BLOOD CREATININE INCREASED [None]
  - BLOOD GASTRIN INCREASED [None]
  - BLOOD GLUCOSE DECREASED [None]
  - BLOOD SODIUM DECREASED [None]
  - BLOOD UREA INCREASED [None]
  - BONE EROSION [None]
  - CEREBROSPINAL FLUID RHINORRHOEA [None]
  - DISEASE PROGRESSION [None]
  - HORNER'S SYNDROME [None]
  - HYPOTENSION [None]
  - PNEUMOCEPHALUS [None]
  - PROLACTINOMA [None]
  - TACHYCARDIA [None]
  - VISION BLURRED [None]
  - VITH NERVE PARALYSIS [None]
